APPROVED DRUG PRODUCT: MEPIVACAINE HYDROCHLORIDE W/ LEVONORDEFRIN
Active Ingredient: LEVONORDEFRIN; MEPIVACAINE HYDROCHLORIDE
Strength: 0.05MG/ML;2%
Dosage Form/Route: INJECTABLE;INJECTION
Application: A084850 | Product #002
Applicant: BELMORA LLC
Approved: Oct 21, 1983 | RLD: No | RS: No | Type: DISCN